FAERS Safety Report 8327961-2 (Version None)
Quarter: 2012Q2

REPORT INFORMATION
  Report Type: 
  Country: None (occurrence: None)
  Receive Date: 20120430
  Receipt Date: 20120417
  Transmission Date: 20120825
  Serious: Yes (Other)
  Sender: FDA-Public Use
  Company Number: GER/GRE/12/0024070

PATIENT
  Sex: Female

DRUGS (3)
  1. FLUCONAZOLE [Suspect]
     Indication: PRODUCT USED FOR UNKNOWN INDICATION
  2. GARAMYCIN [Concomitant]
  3. CLOPIDEGREL [Suspect]
     Indication: PRODUCT USED FOR UNKNOWN INDICATION
     Dosage: 100 MG, 2 IN 1 M
     Dates: start: 20120101

REACTIONS (1)
  - URINARY TRACT INFECTION [None]
